FAERS Safety Report 5162130-9 (Version None)
Quarter: 2006Q4

REPORT INFORMATION
  Report Type: 
  Country: None (occurrence: None)
  Receive Date: 20061117
  Receipt Date: 20061114
  Transmission Date: 20070319
  Serious: Yes (Hospitalization)
  Sender: FDA-Public Use
  Company Number: 2006-150360-NL

PATIENT
  Sex: Female

DRUGS (1)
  1. ROCURONIUM BROMIDE [Suspect]
     Indication: NEUROMUSCULAR BLOCKADE
     Dosage: DF,

REACTIONS (2)
  - GASTRIC BANDING [None]
  - PROCEDURAL COMPLICATION [None]
